FAERS Safety Report 11112057 (Version 1)
Quarter: 2015Q2

REPORT INFORMATION
  Report Type: Spontaneous
  Country: US (occurrence: None)
  Receive Date: 20150513
  Receipt Date: 20150513
  Transmission Date: 20150821
  Serious: Yes (Other)
  Sender: FDA-Public Use
  Company Number: None

PATIENT
  Age: 52 Year
  Sex: Female
  Weight: 53.52 kg

DRUGS (1)
  1. ACETAMINOPHEN 250MG, ASPIRIN 250MG, CAFFEINE 65MG [Suspect]
     Active Substance: ACETAMINOPHEN\ASPIRIN\CAFFEINE
     Indication: MIGRAINE
     Dosage: TAKEN BY MOUTH

REACTIONS (5)
  - Dizziness [None]
  - Presyncope [None]
  - Product odour abnormal [None]
  - Tremor [None]
  - Vomiting [None]

NARRATIVE: CASE EVENT DATE: 20150502
